FAERS Safety Report 8021619-5 (Version None)
Quarter: 2012Q1

REPORT INFORMATION
  Report Type: 
  Country: None (occurrence: None)
  Receive Date: 20120104
  Receipt Date: 20120104
  Transmission Date: 20120608
  Serious: No
  Sender: FDA-Public Use
  Company Number: None

PATIENT
  Age: 62 Year
  Sex: Female
  Weight: 65.77 kg

DRUGS (1)
  1. HALDOL [Suspect]
     Dosage: 450MG
     Route: 030
     Dates: start: 19900101, end: 20111201

REACTIONS (5)
  - LIMB DISCOMFORT [None]
  - MUSCLE SPASMS [None]
  - MUSCLE DISORDER [None]
  - MYASTHENIA GRAVIS [None]
  - GAIT DISTURBANCE [None]
